FAERS Safety Report 7728779-1 (Version None)
Quarter: 2011Q3

REPORT INFORMATION
  Report Type: 
  Country: None (occurrence: None)
  Receive Date: 20110831
  Receipt Date: 20110831
  Transmission Date: 20111222
  Serious: Yes (Hospitalization)
  Sender: FDA-Public Use
  Company Number: None

PATIENT
  Age: 67 Year
  Sex: Male
  Weight: 126 kg

DRUGS (2)
  1. ASPIRIN [Suspect]
     Dosage: 650 MG EVERY DAY PO
     Route: 048
     Dates: start: 20110807, end: 20110817
  2. WARFARIN SODIUM [Suspect]
     Dosage: 6 MG EVERY DAY PO
     Route: 048
     Dates: start: 20070103

REACTIONS (6)
  - GASTRIC HAEMORRHAGE [None]
  - HAEMOGLOBIN DECREASED [None]
  - SELF-MEDICATION [None]
  - HAEMATOCRIT DECREASED [None]
  - HEADACHE [None]
  - MELAENA [None]
